FAERS Safety Report 7390362-8 (Version None)
Quarter: 2011Q1

REPORT INFORMATION
  Report Type: 
  Country: None (occurrence: None)
  Receive Date: 20110325
  Receipt Date: 20110317
  Transmission Date: 20110831
  Serious: Yes (Other)
  Sender: FDA-Public Use
  Company Number: DSA_44932_2011

PATIENT
  Sex: Female
  Weight: 68.0396 kg

DRUGS (7)
  1. ATIVAN [Suspect]
     Indication: ANXIETY
     Dosage: 1 MG QD ORAL
     Route: 048
     Dates: start: 19900101
  2. LEVOTHYROXINE [Concomitant]
  3. LASIX [Concomitant]
  4. LOSARTAN [Concomitant]
  5. NASONEX [Concomitant]
  6. ZOCOR [Concomitant]
  7. POTASSIUM [Concomitant]

REACTIONS (2)
  - PRODUCT QUALITY ISSUE [None]
  - DRUG INEFFECTIVE [None]
